FAERS Safety Report 9584114 (Version 1)
Quarter: 2013Q4

REPORT INFORMATION
  Report Type: Spontaneous
  Country: US (occurrence: US)
  Receive Date: 20131002
  Receipt Date: 20131002
  Transmission Date: 20140711
  Serious: No
  Sender: FDA-Public Use
  Company Number: US-AMGEN-USASP2013051271

PATIENT
  Age: 40 Year
  Sex: Female

DRUGS (16)
  1. ENBREL [Suspect]
     Indication: PRODUCT USED FOR UNKNOWN INDICATION
     Dosage: 50 MG, QWK
     Route: 058
  2. SULINDAC [Concomitant]
     Dosage: 150 MG, UNK
  3. TRAZODONE [Concomitant]
     Dosage: 100 MG, UNK
  4. FOLIC ACID [Concomitant]
     Dosage: UNK
  5. CYMBALTA [Concomitant]
     Dosage: 30 MG, UNK
  6. METHOTREXATE [Concomitant]
     Dosage: 2.5 MG, UNK
  7. LEFLUNOMIDE [Concomitant]
     Dosage: 10 MG, UNK
  8. MONTELUKAST [Concomitant]
     Dosage: 10 MG, UNK
  9. HYDROCHLOROTH [Concomitant]
     Dosage: 12.5 MG, UNK
  10. MULTIVITAMINS, PLAIN [Concomitant]
     Dosage: UNK
  11. TURMERIC                           /01079602/ [Concomitant]
     Dosage: 500 MG, UNK
  12. VITAMIN B6 [Concomitant]
     Dosage: 250 MG, UNK
  13. ACIDOPHILUS [Concomitant]
     Dosage: UNK
  14. POTASSIUM GLUCONATE [Concomitant]
     Dosage: 2.5 MEQ, UNK
  15. VITAMIN D                          /00107901/ [Concomitant]
     Dosage: 1000 UNIT, UNK
  16. CALCIUM + MAGNESIUM + ZINK [Concomitant]
     Dosage: UNK

REACTIONS (2)
  - Urticaria [Recovered/Resolved]
  - Burning sensation [Recovered/Resolved]
